FAERS Safety Report 8971592 (Version 2)
Quarter: 2014Q1

REPORT INFORMATION
  Report Type: Spontaneous
  Country: US (occurrence: US)
  Receive Date: 20121211
  Receipt Date: 20140116
  Transmission Date: 20141002
  Serious: No
  Sender: FDA-Public Use
  Company Number: US-PFIZER INC-2012311681

PATIENT
  Age: 64 Year
  Sex: Female
  Weight: 67.57 kg

DRUGS (1)
  1. GABAPENTIN [Suspect]
     Dosage: UNK

REACTIONS (3)
  - Drug hypersensitivity [Unknown]
  - Abdominal pain upper [Unknown]
  - Abdominal discomfort [Recovered/Resolved]
